FAERS Safety Report 7478902-1 (Version None)
Quarter: 2011Q2

REPORT INFORMATION
  Report Type: 
  Country: None (occurrence: None)
  Receive Date: 20110513
  Receipt Date: 20110511
  Transmission Date: 20111010
  Serious: Yes (Other)
  Sender: FDA-Public Use
  Company Number: DE-ROCHE-776662

PATIENT
  Sex: Male

DRUGS (11)
  1. IFOSFAMIDE [Concomitant]
     Indication: BURKITT'S LYMPHOMA
  2. METHOTREXATE [Concomitant]
     Indication: BURKITT'S LYMPHOMA
  3. ETOPOSIDE [Concomitant]
     Indication: BURKITT'S LYMPHOMA
  4. VALCYTE [Suspect]
     Route: 065
  5. RITUXAN [Suspect]
     Indication: BURKITT'S LYMPHOMA
     Dosage: GIVEN ACCORDING TO B-ALL PROTOCOL AND TWO EXTRA ADMINISTRATIONS
     Route: 065
  6. VINDESINE [Concomitant]
     Indication: BURKITT'S LYMPHOMA
  7. CYTARABINE [Concomitant]
     Indication: BURKITT'S LYMPHOMA
  8. VINCRISTINE [Concomitant]
     Indication: BURKITT'S LYMPHOMA
  9. CYCLOPHOSPHAMIDE [Concomitant]
     Indication: BURKITT'S LYMPHOMA
  10. DEXAMETHASONE [Concomitant]
     Indication: BURKITT'S LYMPHOMA
  11. DOXORUBICIN HCL [Concomitant]
     Indication: BURKITT'S LYMPHOMA

REACTIONS (2)
  - CYTOMEGALOVIRUS CHORIORETINITIS [None]
  - CD4 LYMPHOCYTES INCREASED [None]
